FAERS Safety Report 6410746-1 (Version None)
Quarter: 2009Q4

REPORT INFORMATION
  Report Type: 
  Country: None (occurrence: None)
  Receive Date: 20091022
  Receipt Date: 20091014
  Transmission Date: 20100525
  Serious: Yes (Congenital Anomaly)
  Sender: FDA-Public Use
  Company Number: DE-NOVOPROD-286990

PATIENT
  Sex: Male
  Weight: 1.45 kg

DRUGS (5)
  1. LEVEMIR [Suspect]
     Indication: TYPE 1 DIABETES MELLITUS
     Dosage: UNK, QD
     Route: 064
     Dates: end: 20080728
  2. MANINIL [Concomitant]
  3. ANTIFUNGOL                         /00212501/ [Concomitant]
  4. VOMEX A                            /00019501/ [Concomitant]
  5. CEFUROXIM                          /00454602/ [Concomitant]

REACTIONS (3)
  - CLEFT LIP [None]
  - CLEFT LIP AND PALATE [None]
  - PREMATURE BABY [None]
